FAERS Safety Report 6931947-X (Version None)
Quarter: 2010Q3

REPORT INFORMATION
  Report Type: 
  Country: None (occurrence: None)
  Receive Date: 20100819
  Receipt Date: 20100813
  Transmission Date: 20110219
  Serious: Yes (Hospitalization, Other)
  Sender: FDA-Public Use
  Company Number: GB-BRISTOL-MYERS SQUIBB COMPANY-15134927

PATIENT
  Sex: Female

DRUGS (5)
  1. ABILIFY [Suspect]
     Dosage: 1 DF = 20/30MG PER DAYS UNTIL 10 MONTHS AGO REDUCED TO 10MG/D
  2. OXALIPLATIN [Concomitant]
  3. METFORMIN HCL [Concomitant]
  4. NOVORAPID [Concomitant]
  5. LEVOTHYROXINE SODIUM [Concomitant]

REACTIONS (5)
  - DIABETES MELLITUS [None]
  - GASTROINTESTINAL CARCINOMA [None]
  - HAEMORRHAGE [None]
  - OEDEMA PERIPHERAL [None]
  - WHITE BLOOD CELL COUNT DECREASED [None]
